FAERS Safety Report 4269595-5 (Version None)
Quarter: 2004Q1

REPORT INFORMATION
  Report Type: 
  Country: None (occurrence: None)
  Receive Date: 20040112
  Receipt Date: 20040112
  Transmission Date: 20041129
  Serious: Yes (Hospitalization)
  Sender: FDA-Public Use
  Company Number: None

PATIENT
  Age: 56 Year
  Sex: Male

DRUGS (6)
  1. WARFARIN SODIUM [Suspect]
     Indication: THROMBOSIS
     Dosage: 5 MG QD
     Dates: start: 20030519
  2. ENOXAPARIN SODIUM [Suspect]
     Indication: THROMBOSIS
     Dosage: 60MG BID
     Dates: start: 20030519
  3. DSS [Concomitant]
  4. LORATADINE [Concomitant]
  5. RABEPRAZOLE SODIUM [Concomitant]
  6. ATENOLOL [Concomitant]

REACTIONS (1)
  - GASTROINTESTINAL HAEMORRHAGE [None]
